FAERS Safety Report 18094810 (Version 4)
Quarter: 2020Q4

REPORT INFORMATION
  Report Type: Spontaneous
  Country: US (occurrence: US)
  Receive Date: 20200730
  Receipt Date: 20201103
  Transmission Date: 20210113
  Serious: Yes (Other)
  Sender: FDA-Public Use
  Company Number: US-JNJFOC-20200735324

PATIENT
  Age: 67 Year
  Sex: Female
  Weight: 120 kg

DRUGS (1)
  1. SIMPONI [Suspect]
     Active Substance: GOLIMUMAB
     Indication: PRODUCT USED FOR UNKNOWN INDICATION
     Route: 058
     Dates: start: 201810

REACTIONS (4)
  - Product dose omission issue [Unknown]
  - Limb injury [Unknown]
  - Rheumatoid arthritis [Unknown]
  - Device malfunction [Unknown]

NARRATIVE: CASE EVENT DATE: 20200722
